FAERS Safety Report 7426606-3 (Version None)
Quarter: 2011Q1

REPORT INFORMATION
  Report Type: 
  Country: None (occurrence: None)
  Receive Date: 20110302
  Receipt Date: 20101223
  Transmission Date: 20110831
  Serious: No
  Sender: FDA-Public Use
  Company Number: 024611

PATIENT
  Sex: Female
  Weight: 53.1 kg

DRUGS (2)
  1. CIMZIA [Suspect]
     Indication: CROHN'S DISEASE
     Dosage: (400 MG 1X/4 WEEKS SUBCUTANEOUS)
     Route: 058
     Dates: start: 20100810
  2. AZATHIOPRINE [Concomitant]

REACTIONS (4)
  - MALAISE [None]
  - BOWEL MOVEMENT IRREGULARITY [None]
  - LETHARGY [None]
  - ABDOMINAL PAIN UPPER [None]
